FAERS Safety Report 8600713 (Version 2)
Quarter: 2012Q4

REPORT INFORMATION
  Report Type: 
  Country: BR (occurrence: BR)
  Receive Date: 20120606
  Receipt Date: 20121031
  Transmission Date: 20130627
  Serious: Yes (Hospitalization)
  Sender: FDA-Public Use
  Company Number: BR-ASTRAZENECA-2012SE34625

PATIENT
  Age: 67 Year
  Sex: Male
  Weight: 92 kg

DRUGS (3)
  1. ATACAND HCT [Suspect]
     Indication: HYPERTENSION
     Dosage: 8+12.5 MG
     Route: 048
     Dates: end: 2009
  2. ATACAND HCT [Suspect]
     Indication: HYPERTENSION
     Dosage: 16+12.5 MG
     Route: 048
     Dates: start: 2009, end: 2012
  3. NEXIUM [Suspect]
     Indication: GASTRITIS
     Route: 048
     Dates: start: 201205, end: 201207

REACTIONS (5)
  - Arrhythmia [Recovered/Resolved]
  - Drug level increased [Unknown]
  - Gastritis [Recovered/Resolved]
  - Weight decreased [Unknown]
  - Drug ineffective [Recovered/Resolved]
